FAERS Safety Report 18312906 (Version 1)
Quarter: 2020Q3

REPORT INFORMATION
  Report Type: Spontaneous
  Country: US (occurrence: US)
  Receive Date: 20200925
  Receipt Date: 20200925
  Transmission Date: 20201103
  Serious: Yes (Other)
  Sender: FDA-Public Use
  Company Number: None

PATIENT
  Age: 72 Year
  Sex: Male
  Weight: 123.3 kg

DRUGS (16)
  1. PANTOPRAZOLE [Concomitant]
     Active Substance: PANTOPRAZOLE
  2. SIMVASTATIN. [Concomitant]
     Active Substance: SIMVASTATIN
  3. VICODIN [Concomitant]
     Active Substance: ACETAMINOPHEN\HYDROCODONE BITARTRATE
  4. IPRATROPIUM ? ALBUTEROL [Concomitant]
  5. LOSARTAN. [Concomitant]
     Active Substance: LOSARTAN
  6. TIZANIDINE. [Concomitant]
     Active Substance: TIZANIDINE
  7. FUROSEMIDE. [Concomitant]
     Active Substance: FUROSEMIDE
  8. METFORMIN [Concomitant]
     Active Substance: METFORMIN HYDROCHLORIDE
  9. PROCHLORPERAZINE. [Concomitant]
     Active Substance: PROCHLORPERAZINE
  10. BACTRIM [Concomitant]
     Active Substance: SULFAMETHOXAZOLE\TRIMETHOPRIM
  11. TRELEGY ELLIPTA [Concomitant]
     Active Substance: FLUTICASONE FUROATE\UMECLIDINIUM BROMIDE\VILANTEROL TRIFENATATE
  12. CAPECITABINE. [Suspect]
     Active Substance: CAPECITABINE
     Indication: COLON CANCER
     Route: 048
     Dates: start: 20200515
  13. ELIQUIS [Concomitant]
     Active Substance: APIXABAN
  14. GLIMEPIRIDE. [Concomitant]
     Active Substance: GLIMEPIRIDE
  15. METOPROLOL TARTRATE. [Concomitant]
     Active Substance: METOPROLOL TARTRATE
  16. AMLODIPINE [Concomitant]
     Active Substance: AMLODIPINE BESYLATE

REACTIONS (3)
  - Diarrhoea [None]
  - Pain in extremity [None]
  - Tenderness [None]

NARRATIVE: CASE EVENT DATE: 20200925
